FAERS Safety Report 19069977 (Version 2)
Quarter: 2021Q2

REPORT INFORMATION
  Report Type: Spontaneous
  Country: US (occurrence: US)
  Receive Date: 20210329
  Receipt Date: 20210407
  Transmission Date: 20210717
  Serious: No
  Sender: FDA-Public Use
  Company Number: US-PFIZER INC-2021313575

PATIENT
  Age: 73 Year
  Sex: Female
  Weight: 85.28 kg

DRUGS (1)
  1. CLINDAMYCIN. [Suspect]
     Active Substance: CLINDAMYCIN
     Indication: TOOTH INFECTION
     Dosage: 300 MG, 4X/DAY
     Route: 048
     Dates: start: 20210315

REACTIONS (4)
  - Gingival erythema [Not Recovered/Not Resolved]
  - Gingival swelling [Not Recovered/Not Resolved]
  - Drug hypersensitivity [Not Recovered/Not Resolved]
  - Gingival pruritus [Not Recovered/Not Resolved]

NARRATIVE: CASE EVENT DATE: 202103
